FAERS Safety Report 10568428 (Version 2)
Quarter: 2014Q4

REPORT INFORMATION
  Report Type: Spontaneous
  Country: JP (occurrence: JP)
  Receive Date: 20141106
  Receipt Date: 20141106
  Transmission Date: 20150529
  Serious: Yes (Death, Life-Threatening, Other)
  Sender: FDA-Public Use
  Company Number: JP-009507513-1410JPN003063

PATIENT
  Age: 72 Year
  Sex: Male
  Weight: 64 kg

DRUGS (22)
  1. CARBOCAINE [Suspect]
     Active Substance: MEPIVACAINE HYDROCHLORIDE
     Indication: ANALGESIC THERAPY
     Dosage: 3-4 ML, DIVIDED DOSE, FREQUENCY UNKNOWN
     Route: 008
     Dates: start: 20140530, end: 20140530
  2. VOLUVEN [Concomitant]
     Active Substance: HYDROXYETHYL STARCH 130/0.4
     Dosage: DAILY DOSAGE UNKNOWN
     Route: 065
  3. VEEN 3G [Concomitant]
     Dosage: DAILY DOSAGE UNKNOWN
     Route: 065
  4. FENTANYL. [Suspect]
     Active Substance: FENTANYL
     Indication: ANALGESIC THERAPY
     Dosage: 0.025 MG DAILY, DIVIDED DOSE, FREQUENCY UNKNOWN
     Route: 042
     Dates: start: 20140530, end: 20140530
  5. FAMOTIDINE. [Concomitant]
     Active Substance: FAMOTIDINE
     Dosage: DAILY DOSAGE UNKNOWN
     Route: 065
  6. PHYSIO 140 [Concomitant]
     Dosage: DAILY DOSAGE UNKNOWN
     Route: 065
  7. FLUMARIN [Suspect]
     Active Substance: FLOMOXEF SODIUM
     Indication: PROPHYLAXIS
     Dosage: 1 G DAILY, DIVIDED DOSE, FREQUENCY UNKNOWN
     Route: 041
     Dates: start: 20140530, end: 20140530
  8. NEOSYNESIN [Suspect]
     Active Substance: PHENYLEPHRINE HYDROCHLORIDE
     Indication: BLOOD PRESSURE DECREASED
     Dosage: 0.05 MG DAILY, DIVIDED DOSE, FREQUENCY UNKNOWN
     Route: 042
     Dates: start: 20140530, end: 20140530
  9. BICANATE [Concomitant]
     Dosage: DAILY DOSAGE UNKNOWN
     Route: 065
  10. FLUMAZENIL. [Concomitant]
     Active Substance: FLUMAZENIL
     Dosage: 0.25 MG, QD
     Route: 042
     Dates: start: 20140530, end: 20140530
  11. BRIDION [Suspect]
     Active Substance: SUGAMMADEX
     Dosage: 150 MG, QD
     Route: 042
     Dates: start: 20140530, end: 20140530
  12. ULTIVA [Suspect]
     Active Substance: REMIFENTANIL HYDROCHLORIDE
     Indication: ANALGESIC THERAPY
     Dosage: 0.05-0.5 Y, DIVIDED DOSE, FREQUENCY UNKNOWN
     Route: 041
     Dates: start: 20140530, end: 20140530
  13. EPHEDRINE [Suspect]
     Active Substance: EPHEDRINE
     Indication: BLOOD PRESSURE DECREASED
     Dosage: 4 MG DAILY, DIVIDED DOSE, FREQUENCY UNKNOWN
     Route: 042
     Dates: start: 20140530, end: 20140530
  14. SOLYUGEN F [Concomitant]
     Dosage: DAILY DOSAGE UNKNOWN
     Route: 065
  15. BOLHEAL [Suspect]
     Active Substance: FACTOR XIII CONCENTRATE (HUMAN)\FIBRINOGEN HUMAN\THROMBIN HUMAN
     Indication: HAEMOSTASIS
     Dosage: FORMULATION EXT, DAILY DOSAGE UNKNOWN
     Route: 061
     Dates: start: 20140530, end: 20140530
  16. NICARDIPINE HYDROCHLORIDE. [Suspect]
     Active Substance: NICARDIPINE HYDROCHLORIDE
     Indication: BLOOD PRESSURE INCREASED
     Dosage: 0.5 MG DAILY, DIVIDED DOSE, FREQUENCY UNKNOWN
     Route: 042
     Dates: start: 20140530, end: 20140530
  17. EPINEPHRINE. [Concomitant]
     Active Substance: EPINEPHRINE
     Dosage: 1 MG, 6 TIMES A DAY
     Route: 042
     Dates: start: 20140530, end: 20140530
  18. ESLAX [Suspect]
     Active Substance: ROCURONIUM BROMIDE
     Indication: NEUROMUSCULAR BLOCKING THERAPY
     Dosage: 10 MG DAILY, DIVIDED DOSE, FREQUENCY UNKNOWN
     Route: 042
     Dates: start: 20140530, end: 20140530
  19. ALBUMIN HUMAN [Suspect]
     Active Substance: ALBUMIN (HUMAN)
     Dosage: 12.5G/250ML
     Route: 041
     Dates: start: 20140530, end: 20140530
  20. DIPRIVAN [Suspect]
     Active Substance: PROPOFOL
     Indication: SEDATION
     Dosage: 2.0-3.5 MG/KG/H, DIVIDED DOSE, FREQUENCY UNKNOWN
     Route: 041
     Dates: start: 20140530, end: 20140530
  21. SEVOFLURANE. [Concomitant]
     Active Substance: SEVOFLURANE
     Dosage: DAILY DOSAGE UNKNOWN
     Route: 065
  22. XYLOCAINE [Concomitant]
     Active Substance: LIDOCAINE HYDROCHLORIDE
     Dosage: DAILY DOSAGE UNKNOWN
     Route: 065

REACTIONS (8)
  - Cardiac arrest [Fatal]
  - Electrocardiogram ST segment depression [Unknown]
  - Hypertension [Unknown]
  - Hypotension [Unknown]
  - Pulseless electrical activity [Unknown]
  - Acute myocardial infarction [Fatal]
  - Bradycardia [Fatal]
  - Ventricular fibrillation [Unknown]

NARRATIVE: CASE EVENT DATE: 20140530
